FAERS Safety Report 9175455 (Version 1)
Quarter: 2013Q1

REPORT INFORMATION
  Report Type: Report from Study
  Country: US (occurrence: US)
  Receive Date: 20130320
  Receipt Date: 20130320
  Transmission Date: 20140127
  Serious: Yes (Hospitalization)
  Sender: FDA-Public Use
  Company Number: US-BRISTOL-MYERS SQUIBB COMPANY-17165614

PATIENT
  Age: 61 Year
  Sex: Female
  Weight: 53 kg

DRUGS (37)
  1. CARBOPLATIN [Suspect]
     Indication: NON-SMALL CELL LUNG CANCER
     Dosage: ON DAY 3 OF 21 DAY CYCLE(1 IN 21 DAYS)
     Route: 042
     Dates: start: 20120816, end: 20121025
  2. PACLITAXEL [Suspect]
     Indication: NON-SMALL CELL LUNG CANCER
     Dosage: ON DAY 3 OF 21 DAY CYCLE
     Route: 042
     Dates: start: 20120816
  3. NUCYNTA [Concomitant]
     Indication: BACK PAIN
     Dosage: 75MG/6HRS ALSO TAKEN?04SEP-2012
     Dates: start: 20120806
  4. PROPAFENONE [Concomitant]
     Indication: ARRHYTHMIA
     Dates: start: 2000
  5. QUETIAPINE FUMARATE [Concomitant]
     Indication: DEPRESSION
     Dates: start: 20120813
  6. COLACE [Concomitant]
     Indication: CONSTIPATION
     Dates: start: 20120731
  7. ENOXAPARIN [Concomitant]
     Indication: CEREBROVASCULAR ACCIDENT
     Dates: start: 20120719
  8. ENOXAPARIN [Concomitant]
     Indication: DEEP VEIN THROMBOSIS
     Dates: start: 20120719
  9. HYDROXYZINE [Concomitant]
     Indication: DEPRESSION
     Dates: start: 20120806
  10. MIRALAX [Concomitant]
     Indication: CONSTIPATION
     Dosage: 1DF:2 TABLE SPOON
     Dates: start: 20120731
  11. ZOFRAN [Concomitant]
     Indication: NAUSEA
     Dosage: 09AUG2012-ONG:8MG (PRN)?01OCT2012-01OCT2012:8MG(PRN)
     Dates: start: 20120809
  12. PROCHLORPERAZINE [Concomitant]
     Indication: NAUSEA
     Dates: start: 20120809
  13. DENOSUMAB [Concomitant]
     Indication: METASTASES TO BONE
     Dates: start: 20120814
  14. PARACETAMOL [Concomitant]
     Indication: PREMEDICATION
     Dates: start: 20120816
  15. DEXAMETHASONE [Concomitant]
     Indication: PREMEDICATION
     Dates: start: 20120816, end: 20121027
  16. DIPHENHYDRAMINE [Concomitant]
     Indication: PREMEDICATION
     Dates: start: 20120816, end: 20121025
  17. FAMOTIDINE [Concomitant]
     Indication: PREMEDICATION
     Dates: start: 20120816, end: 20121025
  18. FLUTICASONE [Concomitant]
     Indication: NASAL CONGESTION
     Dosage: ACT Q 6 HRS
     Dates: start: 20120730
  19. CHERACOL [Concomitant]
     Indication: COUGH
     Dosage: 1DF:200-20 MG Q4-6 HRS PRN
     Dates: start: 20120904
  20. LYRICA [Concomitant]
     Indication: NEUROPATHY PERIPHERAL
     Dates: start: 20120719
  21. PALONOSETRON [Concomitant]
     Indication: PREMEDICATION
     Dates: start: 20120816, end: 20121025
  22. SENNA [Concomitant]
     Indication: CONSTIPATION
     Dates: start: 20120731
  23. SODIUM CHLORIDE [Concomitant]
     Indication: HYPONATRAEMIA
     Dates: start: 20120822
  24. SYMBICORT [Concomitant]
     Indication: CHRONIC OBSTRUCTIVE PULMONARY DISEASE
     Dosage: 1DF:160-4.5 MCG/ACT PRN
     Dates: start: 20120730
  25. ALBUTEROL SULFATE [Concomitant]
     Indication: CHRONIC OBSTRUCTIVE PULMONARY DISEASE
     Dates: start: 1999
  26. ALPRAZOLAM [Concomitant]
     Indication: CHRONIC OBSTRUCTIVE PULMONARY DISEASE
     Dates: start: 2001
  27. AMLODIPINE BESYLATE [Concomitant]
     Indication: HYPERTENSION
     Dates: start: 20120730
  28. PULMICORT [Concomitant]
     Indication: CHRONIC OBSTRUCTIVE PULMONARY DISEASE
     Dosage: 1DF:160-4.5MG
     Dates: start: 2010
  29. CELEBREX [Concomitant]
     Indication: PAIN
     Dates: start: 2011
  30. CLARITIN [Concomitant]
     Indication: SINUS CONGESTION
     Dates: start: 2009
  31. DURAGESIC [Concomitant]
     Indication: BACK PAIN
     Dates: start: 20120818
  32. PROZAC [Concomitant]
     Indication: DEPRESSION
     Dates: start: 2000
  33. HYDROCHLOROTHIAZIDE [Concomitant]
     Indication: HYPERTENSION
     Dates: start: 2004
  34. LIPITOR [Concomitant]
     Indication: HYPERLIPIDAEMIA
     Dates: start: 1996
  35. LUNESTA [Concomitant]
     Indication: INSOMNIA
     Dates: start: 2005
  36. NEXIUM [Concomitant]
     Indication: GASTROOESOPHAGEAL REFLUX DISEASE
     Dates: start: 2000
  37. DROPERIDOL [Concomitant]
     Indication: NAUSEA
     Dosage: 1DF: 0.625 UNITS NOS
     Dates: start: 20121001, end: 20121002

REACTIONS (5)
  - Nausea [Unknown]
  - Vomiting [Recovered/Resolved]
  - Dehydration [Unknown]
  - Headache [Unknown]
  - Confusional state [Unknown]
